FAERS Safety Report 4397632-6 (Version None)
Quarter: 2004Q3

REPORT INFORMATION
  Report Type: 
  Country: None (occurrence: None)
  Receive Date: 20040712
  Receipt Date: 20040622
  Transmission Date: 20050211
  Serious: Yes (Death)
  Sender: FDA-Public Use
  Company Number: GBS040514998

PATIENT
  Age: 51 Year
  Sex: Male
  Weight: 76 kg

DRUGS (1)
  1. PROZAC [Suspect]
     Indication: DEPRESSION
     Dosage: 20 MG DAY
     Dates: start: 20030828

REACTIONS (11)
  - ABNORMAL BEHAVIOUR [None]
  - AORTIC ATHEROSCLEROSIS [None]
  - CHONDROPATHY [None]
  - CORONARY ARTERY ATHEROSCLEROSIS [None]
  - CORONARY ARTERY STENOSIS [None]
  - FRACTURE [None]
  - INJURY ASPHYXIATION [None]
  - PERSONALITY CHANGE [None]
  - PULMONARY CONGESTION [None]
  - PULMONARY OEDEMA [None]
  - TREATMENT NONCOMPLIANCE [None]
